FAERS Safety Report 5087839-7 (Version None)
Quarter: 2006Q3

REPORT INFORMATION
  Report Type: 
  Country: None (occurrence: None)
  Receive Date: 20060821
  Receipt Date: 20060821
  Transmission Date: 20061208
  Serious: Yes (Disabling)
  Sender: FDA-Public Use
  Company Number: None

PATIENT
  Age: 40 Year
  Sex: Male
  Weight: 65.5 kg

DRUGS (8)
  1. OMNISCAN [Suspect]
     Indication: BILE DUCT STENOSIS
     Dosage: 40 CC ONE TIME INJECTION IV
     Route: 042
     Dates: start: 20050118, end: 20050118
  2. OMNISCAN [Suspect]
     Indication: COMPLICATIONS OF TRANSPLANTED LIVER
     Dosage: 40 CC ONE TIME INJECTION IV
     Route: 042
     Dates: start: 20050118, end: 20050118
  3. CELLCEPT [Concomitant]
  4. NORVASC [Concomitant]
  5. LASIX [Concomitant]
  6. PROGRAF [Concomitant]
  7. SEPTRA [Concomitant]
  8. PEPCID [Concomitant]

REACTIONS (9)
  - ASTHENIA [None]
  - CELLULITIS [None]
  - ERYTHEMA [None]
  - MYOPATHY [None]
  - MYOSITIS [None]
  - NEPHROGENIC FIBROSING DERMOPATHY [None]
  - PAIN [None]
  - SKIN HYPERTROPHY [None]
  - SWELLING [None]
